FAERS Safety Report 10230526 (Version 1)
Quarter: 2014Q2

REPORT INFORMATION
  Report Type: Spontaneous
  Country: US (occurrence: US)
  Receive Date: 20140611
  Receipt Date: 20140611
  Transmission Date: 20141212
  Serious: No
  Sender: FDA-Public Use
  Company Number: US-INCYTE CORPORATION-2014IN001169

PATIENT
  Age: 67 Year
  Sex: Female

DRUGS (3)
  1. JAKAFI [Suspect]
     Indication: MYELOFIBROSIS
     Dosage: 10 MG, BID
     Route: 048
     Dates: start: 20140408
  2. COUMADIN                           /00014802/ [Concomitant]
  3. HYDREA [Concomitant]

REACTIONS (3)
  - Bronchitis [Unknown]
  - Fatigue [Unknown]
  - Headache [Unknown]
